FAERS Safety Report 15490372 (Version 2)
Quarter: 2018Q4

REPORT INFORMATION
  Report Type: Spontaneous
  Country: FR (occurrence: FR)
  Receive Date: 20181011
  Receipt Date: 20181219
  Transmission Date: 20190205
  Serious: Yes (Hospitalization, Congenital Anomaly)
  Sender: FDA-Public Use
  Company Number: PHHY2018FR119938

PATIENT
  Sex: Male

DRUGS (7)
  1. TARDYFERON [Suspect]
     Active Substance: FERROUS SULFATE
     Indication: FOETAL EXPOSURE DURING PREGNANCY
     Route: 064
  2. DOLIPRANE [Suspect]
     Active Substance: ACETAMINOPHEN
     Indication: FOETAL EXPOSURE DURING PREGNANCY
     Route: 064
  3. DAFALGAN CODEINE [Suspect]
     Active Substance: ACETAMINOPHEN\CODEINE PHOSPHATE
     Indication: FOETAL EXPOSURE DURING PREGNANCY
     Route: 064
  4. ATARAX [Suspect]
     Active Substance: HYDROXYZINE HYDROCHLORIDE
     Indication: FOETAL EXPOSURE DURING PREGNANCY
     Route: 064
  5. SPASFON (PHLOROGLUCINOL;TRIMETHYLPHLOROGLUCINOL) [Suspect]
     Active Substance: PHLOROGLUCINOL\1,3,5-TRIMETHOXYBENZENE
     Indication: FOETAL EXPOSURE DURING PREGNANCY
     Route: 064
  6. AMOXICILLIN. [Suspect]
     Active Substance: AMOXICILLIN
     Indication: FOETAL EXPOSURE DURING PREGNANCY
     Dosage: UNK
     Route: 064
  7. PROGESTAN [Suspect]
     Active Substance: PROGESTERONE
     Indication: FOETAL EXPOSURE DURING PREGNANCY
     Dosage: MATERNAL DOSE: 600MG QD
     Route: 064
     Dates: start: 20140127, end: 201403

REACTIONS (4)
  - Threatened labour [Unknown]
  - Foetal growth restriction [Recovered/Resolved]
  - Cryptorchism [Recovered/Resolved]
  - Microcephaly [Recovered/Resolved]

NARRATIVE: CASE EVENT DATE: 20140825
